FAERS Safety Report 9452503 (Version 2)
Quarter: 2013Q3

REPORT INFORMATION
  Report Type: Spontaneous
  Country: US (occurrence: US)
  Receive Date: 20130812
  Receipt Date: 20130905
  Transmission Date: 20140515
  Serious: No
  Sender: FDA-Public Use
  Company Number: US-PFIZER INC-2013229516

PATIENT
  Age: 41 Year
  Sex: Female
  Weight: 78.91 kg

DRUGS (11)
  1. FELDENE [Suspect]
     Dosage: UNK
  2. IBUPROFEN [Suspect]
     Dosage: UNK
  3. GEODON [Suspect]
     Dosage: UNK
  4. TOLECTIN [Suspect]
     Dosage: UNK
  5. ANCEF [Suspect]
     Dosage: UNK
  6. NAPROSYN [Suspect]
     Dosage: UNK
  7. MOTRIN [Suspect]
     Dosage: UNK
  8. DEMEROL [Suspect]
     Dosage: UNK
  9. LEVAQUIN [Suspect]
     Dosage: UNK
  10. BACTRIM [Suspect]
     Dosage: UNK
  11. TEGRETOL [Suspect]
     Dosage: UNK

REACTIONS (1)
  - Drug hypersensitivity [Unknown]
